FAERS Safety Report 8171479-7 (Version None)
Quarter: 2012Q1

REPORT INFORMATION
  Report Type: 
  Country: None (occurrence: None)
  Receive Date: 20120104
  Receipt Date: 20111122
  Transmission Date: 20120608
  Serious: No
  Sender: FDA-Public Use
  Company Number: 2011HGS-002857

PATIENT
  Age: 44 Year
  Sex: Female
  Weight: 120.2032 kg

DRUGS (8)
  1. KLONOPIN [Concomitant]
  2. AMBIEN [Concomitant]
  3. ASPIRIN [Concomitant]
  4. ULTRAM (TRAMADOL HYDROCHLORIDE ) ( TRAMADOL HYDROCHLORIDE) [Concomitant]
  5. LISINOPRIL [Concomitant]
  6. BENLYSTA [Suspect]
     Indication: SYSTEMIC LUPUS ERYTHEMATOSUS
     Dosage: 10 MG/KG, 1 IN 28 D, INTRAVENOUS DRIP
     Route: 041
     Dates: start: 20111026
  7. PLAQUENIL (HYDROXYCHLOROQUINE SULFATE)(HYDROXYCHLOROQUINE SULFATE) [Concomitant]
  8. XANAX [Concomitant]

REACTIONS (1)
  - ANXIETY [None]
